FAERS Safety Report 10530083 (Version 5)
Quarter: 2015Q1

REPORT INFORMATION
  Report Type: Spontaneous
  Country: US (occurrence: US)
  Receive Date: 20141021
  Receipt Date: 20150320
  Transmission Date: 20150720
  Serious: Yes (Other)
  Sender: FDA-Public Use
  Company Number: US-NAPPMUNDI-USA-2014-0118286

PATIENT
  Age: 55 Year
  Sex: Male

DRUGS (5)
  1. OXYCONTIN [Suspect]
     Active Substance: OXYCODONE HYDROCHLORIDE
     Indication: PAIN
     Dosage: 80 MG, TID
     Route: 048
     Dates: start: 2003
  2. OXYCODONE                          /00045603/ [Concomitant]
     Active Substance: OXYCODONE
     Indication: BREAKTHROUGH PAIN
     Dosage: 30 MG, Q6H
     Route: 048
  3. OXYCONTIN [Suspect]
     Active Substance: OXYCODONE HYDROCHLORIDE
     Dosage: UNK
     Route: 048
     Dates: start: 1999
  4. OXYCODONE                          /00045603/ [Concomitant]
     Active Substance: OXYCODONE
     Indication: PAIN
     Dosage: 30 MG, Q8H
     Route: 048
  5. OXYCONTIN [Suspect]
     Active Substance: OXYCODONE HYDROCHLORIDE
     Indication: BREAKTHROUGH PAIN
     Dosage: 15 MG, UNK
     Route: 048

REACTIONS (11)
  - Drug ineffective [Unknown]
  - Atrial fibrillation [Unknown]
  - Suspected counterfeit product [Unknown]
  - Cardiac disorder [Unknown]
  - Road traffic accident [Unknown]
  - Intervertebral disc injury [Unknown]
  - Product contamination [Unknown]
  - Diarrhoea [Unknown]
  - Pain [Unknown]
  - Vomiting [Unknown]
  - Drug effect decreased [Unknown]

NARRATIVE: CASE EVENT DATE: 20140722
